FAERS Safety Report 7996884-0 (Version None)
Quarter: 2011Q4

REPORT INFORMATION
  Report Type: 
  Country: None (occurrence: None)
  Receive Date: 20111221
  Receipt Date: 20111212
  Transmission Date: 20120403
  Serious: Yes (Hospitalization, Other)
  Sender: FDA-Public Use
  Company Number: US-BRISTOL-MYERS SQUIBB COMPANY-16287443

PATIENT
  Age: 76 Year
  Sex: Male
  Weight: 123 kg

DRUGS (2)
  1. CARBOPLATIN [Suspect]
     Indication: NON-SMALL CELL LUNG CANCER
     Dosage: LAST ADMINISTERED DOSE:7DEC11
     Dates: start: 20111115
  2. TAXOL [Suspect]
     Indication: NON-SMALL CELL LUNG CANCER
     Dosage: LAST ADMINSTERED DOSE:7DEC11
     Dates: start: 20111115

REACTIONS (5)
  - PLEURITIC PAIN [None]
  - FATIGUE [None]
  - ANXIETY [None]
  - HYPONATRAEMIA [None]
  - LYMPHOPENIA [None]
